FAERS Safety Report 23158819 (Version 2)
Quarter: 2023Q4

REPORT INFORMATION
  Report Type: Spontaneous
  Country: JP (occurrence: JP)
  Receive Date: 20231108
  Receipt Date: 20231201
  Transmission Date: 20240109
  Serious: Yes (Death, Other)
  Sender: FDA-Public Use
  Company Number: JP-ASTELLAS-2023JP012210

PATIENT
  Age: 83 Year
  Sex: Male

DRUGS (5)
  1. TACROLIMUS [Suspect]
     Active Substance: TACROLIMUS
     Indication: Idiopathic pulmonary fibrosis
     Dosage: UNK UNK, UNKNOWN FREQ.
     Route: 065
  2. PREDNISOLONE [Concomitant]
     Active Substance: PREDNISOLONE
     Indication: Idiopathic pulmonary fibrosis
     Dosage: UNK UNK, UNKNOWN FREQ.
     Route: 048
  3. PIRFENIDONE [Concomitant]
     Active Substance: PIRFENIDONE
     Indication: Idiopathic pulmonary fibrosis
     Dosage: UNK UNK, UNKNOWN FREQ.
     Route: 048
  4. PIRFENIDONE [Concomitant]
     Active Substance: PIRFENIDONE
     Dosage: DOSE DECREASED, UNKNOWN FREQ.
     Route: 048
  5. SULFAMETHOXAZOLE\TRIMETHOPRIM [Concomitant]
     Active Substance: SULFAMETHOXAZOLE\TRIMETHOPRIM
     Indication: Idiopathic pulmonary fibrosis
     Dosage: UNK UNK, UNKNOWN FREQ.
     Route: 065

REACTIONS (6)
  - Disseminated intravascular coagulation [Fatal]
  - Pneumonia klebsiella [Unknown]
  - Splenic infection [Unknown]
  - Sepsis [Fatal]
  - Multiple organ dysfunction syndrome [Fatal]
  - Off label use [Unknown]
